FAERS Safety Report 5029323-2 (Version None)
Quarter: 2006Q2

REPORT INFORMATION
  Report Type: 
  Country: None (occurrence: None)
  Receive Date: 20060614
  Receipt Date: 20060525
  Transmission Date: 20061013
  Serious: Yes (Other)
  Sender: FDA-Public Use
  Company Number: US200512003796

PATIENT
  Age: 46 Year
  Sex: Female
  Weight: 48.5 kg

DRUGS (2)
  1. HUMATROPE [Suspect]
     Indication: HYPOTHALAMO-PITUITARY DISORDERS
     Dosage: 0.2 MG
     Dates: start: 20040101
  2. HUMATROPEN (HUMATROPEN) PEN,REUSABLE [Concomitant]

REACTIONS (10)
  - CONVULSION [None]
  - GENERAL PHYSICAL HEALTH DETERIORATION [None]
  - LOWER LIMB FRACTURE [None]
  - MALAISE [None]
  - MEDICAL DEVICE COMPLICATION [None]
  - PHARMACEUTICAL PRODUCT COMPLAINT [None]
  - WEIGHT DECREASED [None]
  - WHITE BLOOD CELL COUNT DECREASED [None]
  - WHITE BLOOD CELL DISORDER [None]
  - WOUND INFECTION STAPHYLOCOCCAL [None]
